FAERS Safety Report 6731044-2 (Version None)
Quarter: 2010Q2

REPORT INFORMATION
  Report Type: 
  Country: None (occurrence: None)
  Receive Date: 20100514
  Receipt Date: 20100502
  Transmission Date: 20101027
  Serious: Yes (Death, Other)
  Sender: FDA-Public Use
  Company Number: 2010S1000038

PATIENT

DRUGS (2)
  1. INOMAX [Suspect]
     Indication: PERSISTENT FOETAL CIRCULATION
     Dosage: 20 PPM;CONT;INH
     Route: 055
     Dates: start: 20100429, end: 20100502
  2. INOVENT DELIVERY SYSTEM [Suspect]

REACTIONS (4)
  - DEVICE FAILURE [None]
  - OXYGEN SATURATION DECREASED [None]
  - PLEURAL EFFUSION [None]
  - PULMONARY HYPOPLASIA [None]
